FAERS Safety Report 4387830-X (Version None)
Quarter: 2004Q2

REPORT INFORMATION
  Report Type: 
  Country: None (occurrence: None)
  Receive Date: 20040630
  Receipt Date: 20040604
  Transmission Date: 20050107
  Serious: Yes (Hospitalization)
  Sender: FDA-Public Use
  Company Number: PHHO2004US08110

PATIENT
  Age: 73 Year
  Sex: Male
  Weight: 83 kg

DRUGS (14)
  1. IMATINIB VS PLACEBO [Suspect]
     Indication: PROSTATE CANCER
     Dosage: 600 MG, QD
     Route: 048
     Dates: start: 20040517, end: 20040531
  2. TAXOTERE [Concomitant]
     Indication: PROSTATE CANCER
     Dosage: 30 MG/M2, QW
     Route: 042
     Dates: start: 20040517, end: 20040531
  3. IMODIUM [Concomitant]
  4. AMBIEN [Concomitant]
     Indication: INSOMNIA
     Dates: start: 20040416, end: 20040516
  5. CALCIUM [Concomitant]
     Dates: start: 20031124
  6. VITAMIN D [Concomitant]
     Dates: start: 20031124
  7. CELEBREX [Concomitant]
     Indication: OSTEOARTHRITIS
     Dates: start: 20040105
  8. DECADRON [Concomitant]
     Indication: PAIN
     Dates: start: 20040408
  9. DITROPAN XL [Concomitant]
     Indication: URINARY TRACT INFECTION
     Dates: start: 20040416
  10. MULTI-VITAMINS [Concomitant]
     Dates: start: 20030807
  11. PRILOSEC [Concomitant]
     Indication: GASTROOESOPHAGEAL REFLUX DISEASE
     Dates: start: 20040408
  12. OXYCODONE [Concomitant]
     Indication: PAIN
     Dates: start: 20040510
  13. ASPIRIN [Concomitant]
     Indication: PAIN
     Dates: start: 20030807
  14. COMPAZINE [Concomitant]
     Indication: NAUSEA
     Dates: start: 20040521

REACTIONS (8)
  - ABDOMINAL PAIN LOWER [None]
  - ATRIAL FLUTTER [None]
  - DEPRESSION [None]
  - DIARRHOEA [None]
  - HEPATIC ENZYME INCREASED [None]
  - HEPATIC STEATOSIS [None]
  - NAUSEA [None]
  - PYREXIA [None]
